FAERS Safety Report 7643653-7 (Version None)
Quarter: 2011Q3

REPORT INFORMATION
  Report Type: 
  Country: None (occurrence: None)
  Receive Date: 20110729
  Receipt Date: 20110721
  Transmission Date: 20111222
  Serious: Yes (Other)
  Sender: FDA-Public Use
  Company Number: PHHY2011US65949

PATIENT
  Sex: Female

DRUGS (7)
  1. GLUCOPHAGE [Concomitant]
  2. RECLAST [Suspect]
     Dosage: UNK UKN, UNK
     Route: 042
     Dates: start: 20110406
  3. CORGARD [Concomitant]
  4. LISINOPRIL [Concomitant]
  5. ULTRAM [Concomitant]
  6. PLAQUENIL [Concomitant]
  7. AMARYL [Concomitant]

REACTIONS (3)
  - MULTIPLE FRACTURES [None]
  - FOOT FRACTURE [None]
  - RIB FRACTURE [None]
